FAERS Safety Report 6611472-6 (Version None)
Quarter: 2010Q1

REPORT INFORMATION
  Report Type: 
  Country: None (occurrence: None)
  Receive Date: 20100303
  Receipt Date: 20100224
  Transmission Date: 20100710
  Serious: Yes (Other)
  Sender: FDA-Public Use
  Company Number: GB-ASTRAZENECA-2010SE08089

PATIENT
  Age: 52 Year
  Sex: Male
  Weight: 77 kg

DRUGS (9)
  1. QUETIAPINE [Suspect]
     Indication: BIPOLAR DISORDER
     Route: 048
     Dates: start: 20091026, end: 20091114
  2. OMEPRAZOLE [Concomitant]
     Route: 048
  3. AMITRIPTYLINE HCL [Concomitant]
  4. ASPIRIN [Concomitant]
  5. CHONDROITIN [Concomitant]
  6. DIHYDROCODEINE BITARTRATE INJ [Concomitant]
     Route: 048
  7. ESCITALOPRAM [Concomitant]
     Route: 048
  8. GLUCOSAMINE [Concomitant]
  9. NAPROXEN [Concomitant]

REACTIONS (3)
  - CONFUSIONAL STATE [None]
  - DYSARTHRIA [None]
  - INCOHERENT [None]
